FAERS Safety Report 7295556-8 (Version None)
Quarter: 2011Q1

REPORT INFORMATION
  Report Type: 
  Country: None (occurrence: None)
  Receive Date: 20110216
  Receipt Date: 20110125
  Transmission Date: 20110831
  Serious: Yes (Death)
  Sender: FDA-Public Use
  Company Number: US-TYCO HEALTHCARE/MALLINCKRODT-T201100229

PATIENT
  Age: 37 Year
  Sex: Female

DRUGS (11)
  1. ACETAMINOPHEN [Suspect]
     Route: 048
  2. ANTIDEPRESSANTS [Suspect]
     Route: 048
  3. ETHANOL [Suspect]
     Route: 048
  4. ZIPRASIDONE [Suspect]
     Route: 048
  5. NAPROXEN [Suspect]
     Route: 048
  6. GABAPENTIN [Suspect]
     Route: 048
  7. OXYCODONE [Suspect]
     Route: 048
  8. AMLODIPINE [Suspect]
     Route: 048
  9. ZOLPIDEM [Suspect]
     Route: 048
  10. ALPRAZOLAM [Suspect]
     Route: 048
  11. DIPHENHYDRAMINE [Suspect]
     Route: 048

REACTIONS (1)
  - COMPLETED SUICIDE [None]
